FAERS Safety Report 4315010-2 (Version None)
Quarter: 2004Q1

REPORT INFORMATION
  Report Type: 
  Country: None (occurrence: None)
  Receive Date: 20040309
  Receipt Date: 20040223
  Transmission Date: 20041129
  Serious: Yes (Death, Hospitalization)
  Sender: FDA-Public Use
  Company Number: 04P-083-0251244-00

PATIENT
  Age: 65 Year
  Sex: Female
  Weight: 66 kg

DRUGS (11)
  1. HUMIRA [Suspect]
     Indication: RHEUMATOID ARTHRITIS
     Dosage: 1 IN 2 WK, SUBCUTANEOUS
     Route: 058
     Dates: start: 20031205, end: 20040123
  2. METHOTREXATE SODIUM [Concomitant]
  3. FOLIC ACID [Concomitant]
  4. METHYLPREDNISOLONE [Concomitant]
  5. CELECOXIB [Concomitant]
  6. FUROSEMIDE [Concomitant]
  7. CANRENOIC ACID [Concomitant]
  8. MISOPROSTOL [Concomitant]
  9. COUMADIN [Concomitant]
  10. LORAZEPAM [Concomitant]
  11. CLODRONATE DISODIUM [Concomitant]

REACTIONS (5)
  - COAGULOPATHY [None]
  - DIVERTICULAR PERFORATION [None]
  - DIVERTICULITIS [None]
  - HAEMORRHAGE [None]
  - PERITONITIS [None]
